FAERS Safety Report 8917503 (Version 2)
Quarter: 2013Q1

REPORT INFORMATION
  Report Type: Report from Study
  Country: GR (occurrence: GR)
  Receive Date: 20121120
  Receipt Date: 20130110
  Transmission Date: 20140127
  Serious: Yes (Hospitalization)
  Sender: FDA-Public Use
  Company Number: GR-ROCHE-1154516

PATIENT
  Age: 33 Year
  Sex: Male
  Weight: 78.5 kg

DRUGS (5)
  1. METHOXY POLYETHYLENE GLYCOL-EPOETIN BETA [Suspect]
     Indication: NEPHROGENIC ANAEMIA
     Dosage: DATE LAST DOSE PRIOR TO SAE:03/OCT/2012
     Route: 042
     Dates: start: 20100706
  2. FOLIC ACID [Concomitant]
     Route: 065
     Dates: start: 20101008
  3. SEVELAMER HYDROCHLORIDE [Concomitant]
     Route: 065
     Dates: start: 20110324
  4. CALCIUM ACETATE/MAGNESIUM CARBONATE [Concomitant]
     Route: 065
     Dates: start: 20120312
  5. METOPROLOL [Concomitant]
     Route: 065
     Dates: start: 20100629

REACTIONS (1)
  - Atrial fibrillation [Recovered/Resolved]
